FAERS Safety Report 9538898 (Version 1)
Quarter: 2013Q3

REPORT INFORMATION
  Report Type: Report from Study
  Country: US (occurrence: US)
  Receive Date: 20130920
  Receipt Date: 20130920
  Transmission Date: 20140515
  Serious: Yes (Other)
  Sender: FDA-Public Use
  Company Number: US-009507513-1309USA005552

PATIENT
  Age: 60 Year
  Sex: Male

DRUGS (10)
  1. BOCEPREVIR [Suspect]
     Indication: HIV INFECTION
  2. RIBAVIRIN [Suspect]
     Indication: HIV INFECTION
     Dosage: UNK, TID, 1800 MG TOTAL DAILY DOSE
     Route: 048
     Dates: start: 20130823, end: 20130904
  3. RIBAVIRIN [Suspect]
     Dosage: 1200 MG, QD
     Route: 048
     Dates: start: 20130905
  4. PEGINTERFERON ALFA-2B [Suspect]
     Indication: HIV INFECTION
     Dosage: 120 MICROGRAM, UNK
     Route: 058
     Dates: start: 20130823
  5. ATAZANAVIR [Concomitant]
     Dosage: 300 MG, QD
     Route: 048
     Dates: start: 19950701
  6. NORVIR [Concomitant]
     Dosage: 100 MG, QD
     Route: 048
     Dates: start: 19950701
  7. TRUVADA [Concomitant]
     Dosage: 200 MG, UNK
     Route: 048
     Dates: start: 19950701
  8. WELLBUTRIN SR [Concomitant]
     Dosage: 150 MG, QD
     Route: 048
     Dates: start: 19970701
  9. VITAMINS (UNSPECIFIED) [Concomitant]
     Dosage: 1 DF, QD
     Route: 048
     Dates: start: 19950701
  10. NIZORAL [Concomitant]
     Dosage: DOSE: AS DIRECTED, QD
     Route: 061
     Dates: start: 19970701

REACTIONS (1)
  - Overdose [Recovered/Resolved]
